FAERS Safety Report 13708233 (Version 1)
Quarter: 2017Q2

REPORT INFORMATION
  Report Type: Report from Study
  Country: US (occurrence: BR)
  Receive Date: 20170630
  Receipt Date: 20170630
  Transmission Date: 20170830
  Serious: Yes (Hospitalization)
  Sender: FDA-Public Use
  Company Number: US-SUNOVION-2017SUN002806

PATIENT
  Age: 67 Year
  Sex: Male
  Weight: 60 kg

DRUGS (3)
  1. INDACATEROL AND GLYCOPYRROLATE [Suspect]
     Active Substance: GLYCOPYRROLATE\INDACATEROL MALEATE
     Dosage: 110/50 UG, QD
     Route: 055
     Dates: start: 20170224
  2. INDACATEROL AND GLYCOPYRROLATE [Suspect]
     Active Substance: GLYCOPYRROLATE\INDACATEROL MALEATE
     Dosage: 110/50 UG, QD
     Route: 055
  3. INDACATEROL AND GLYCOPYRROLATE [Suspect]
     Active Substance: GLYCOPYRROLATE\INDACATEROL MALEATE
     Indication: EMPHYSEMA
     Dosage: 110/50 UG, QD
     Route: 055
     Dates: start: 201610

REACTIONS (10)
  - Hypersensitivity [Unknown]
  - Viral upper respiratory tract infection [Unknown]
  - Sneezing [Unknown]
  - Rash [Unknown]
  - Pruritus [Unknown]
  - Cough [Unknown]
  - Thirst [Unknown]
  - Dry mouth [Unknown]
  - Dyspnoea [Unknown]
  - Catarrh [Unknown]

NARRATIVE: CASE EVENT DATE: 20170618
